FAERS Safety Report 9394462 (Version 2)
Quarter: 2013Q3

REPORT INFORMATION
  Report Type: Spontaneous
  Country: US (occurrence: US)
  Receive Date: 20130711
  Receipt Date: 20130722
  Transmission Date: 20140515
  Serious: No
  Sender: FDA-Public Use
  Company Number: US-PFIZER INC-2013202630

PATIENT
  Age: 64 Year
  Sex: Female
  Weight: 51.25 kg

DRUGS (7)
  1. XELJANZ [Suspect]
     Indication: RHEUMATOID ARTHRITIS
     Dosage: 5 MG, 2X/DAY
     Route: 048
     Dates: start: 201305, end: 201305
  2. PLAQUENIL [Concomitant]
     Dosage: 200 MG, UNK
     Route: 048
  3. ULTRACET [Concomitant]
     Dosage: TRAMADOL 37.5 - PARACETAMOL 325
     Route: 048
  4. METHOTREXATE [Concomitant]
     Dosage: 2.5 MG, UNK
     Route: 048
  5. PREDNISONE [Concomitant]
     Dosage: 1 MG, UNK
     Route: 048
  6. MOBIC [Concomitant]
     Dosage: 7.5 MG, UNK
     Route: 048
  7. FOLIC ACID [Concomitant]
     Dosage: UNK
     Route: 048

REACTIONS (3)
  - Abdominal pain upper [Recovering/Resolving]
  - Muscle spasms [Recovered/Resolved]
  - Abdominal pain [Recovered/Resolved]
